FAERS Safety Report 14178265 (Version 1)
Quarter: 2017Q4

REPORT INFORMATION
  Report Type: Spontaneous
  Country: CH (occurrence: CH)
  Receive Date: 20171110
  Receipt Date: 20171110
  Transmission Date: 20180321
  Serious: Yes (Hospitalization, Other)
  Sender: FDA-Public Use
  Company Number: CH-ROCHE-2020969

PATIENT
  Age: 17 Year
  Sex: Female

DRUGS (15)
  1. FUROSEMIDE. [Concomitant]
     Active Substance: FUROSEMIDE
  2. ISAVUCONAZONIUM [Concomitant]
     Active Substance: ISAVUCONAZONIUM
     Indication: ANTIFUNGAL PROPHYLAXIS
  3. MEROPENEM. [Concomitant]
     Active Substance: MEROPENEM
  4. BUMETANIDE. [Concomitant]
     Active Substance: BUMETANIDE
  5. FILGRASTIM [Concomitant]
     Active Substance: FILGRASTIM
     Indication: WHITE BLOOD CELL COUNT DECREASED
     Route: 065
  6. KETAMINE [Concomitant]
     Active Substance: KETAMINE
  7. FENTANYL. [Concomitant]
     Active Substance: FENTANYL
  8. GRANISETRON [Concomitant]
     Active Substance: GRANISETRON
     Route: 065
  9. CELECOXIB. [Concomitant]
     Active Substance: CELECOXIB
  10. DEXMEDETOMIDINE. [Concomitant]
     Active Substance: DEXMEDETOMIDINE
  11. POSACONAZOLE [Concomitant]
     Active Substance: POSACONAZOLE
  12. VALACYCLOVIR HYDROCHLORIDE. [Concomitant]
     Active Substance: VALACYCLOVIR HYDROCHLORIDE
  13. ACTEMRA [Suspect]
     Active Substance: TOCILIZUMAB
     Indication: CYTOKINE RELEASE SYNDROME
     Dosage: DOSAGE IS UNCERTAIN.
     Route: 065
     Dates: start: 20160515
  14. MIDAZOLAM [Concomitant]
     Active Substance: MIDAZOLAM HYDROCHLORIDE
  15. TISAGENLECLEUCEL. [Suspect]
     Active Substance: TISAGENLECLEUCEL
     Indication: PRODUCT USED FOR UNKNOWN INDICATION
     Dosage: DOSAGE IS UNCERTAIN.
     Route: 041

REACTIONS (5)
  - Troponin increased [Recovered/Resolved]
  - Left ventricular dysfunction [Recovered/Resolved]
  - Sinus bradycardia [Recovered/Resolved]
  - Haemarthrosis [Recovered/Resolved]
  - Febrile neutropenia [Recovered/Resolved]

NARRATIVE: CASE EVENT DATE: 20160516
